FAERS Safety Report 21497699 (Version 13)
Quarter: 2023Q4

REPORT INFORMATION
  Report Type: Spontaneous
  Country: CA (occurrence: CA)
  Receive Date: 20221024
  Receipt Date: 20231111
  Transmission Date: 20240110
  Serious: Yes (Other)
  Sender: FDA-Public Use
  Company Number: CA-CELLTRION INC.-2022CA015773

PATIENT

DRUGS (16)
  1. INFLECTRA [Suspect]
     Active Substance: INFLIXIMAB-DYYB
     Indication: Colitis ulcerative
     Dosage: 10 MG/KG, AT 0, 2, 6 WEEKS THEN EVERY 8 WEEKS, HOSPITAL START
     Route: 042
     Dates: start: 202207, end: 20221107
  2. INFLECTRA [Suspect]
     Active Substance: INFLIXIMAB-DYYB
     Dosage: 10 MG/KG, AT 0, 2, 6 WEEKS THEN EVERY 8 WEEKS, HOSPITAL START
     Route: 042
     Dates: start: 20220721
  3. INFLECTRA [Suspect]
     Active Substance: INFLIXIMAB-DYYB
     Dosage: 10 MG/KG, AT 0, 2, 6 WEEKS THEN EVERY 8 WEEKS
     Route: 042
     Dates: start: 20220804
  4. INFLECTRA [Suspect]
     Active Substance: INFLIXIMAB-DYYB
     Dosage: 10 MG/KG, WEEK 6 DOSE THEN EVERY 8 WEEKS
     Route: 042
     Dates: start: 20220912
  5. INFLECTRA [Suspect]
     Active Substance: INFLIXIMAB-DYYB
     Dosage: 10 MG/KG, AFTER 3 WEEKS AND 2 DAYS
     Route: 042
     Dates: start: 20221005
  6. INFLECTRA [Suspect]
     Active Substance: INFLIXIMAB-DYYB
     Dosage: 10 MG/KG, AFTER 1 WEEK
     Route: 042
     Dates: start: 20221012
  7. INFLECTRA [Suspect]
     Active Substance: INFLIXIMAB-DYYB
     Dosage: 600 MG, AFTER 3 WEEKS AND 5 DAYS (SUPPOSED TO RECEIVE 10 MG/KG)
     Route: 042
     Dates: start: 20221107
  8. INFLECTRA [Suspect]
     Active Substance: INFLIXIMAB-DYYB
     Dosage: 12 MG/KG, REINDUCTION: WEEK 0, 2, 6 AND THEN EVERY 4 WEEKS
     Route: 042
     Dates: start: 20221123
  9. INFLECTRA [Suspect]
     Active Substance: INFLIXIMAB-DYYB
     Dosage: 12 MG/KG, REINDUCTION: WEEK 0, 2, 6 AND THEN EVERY 4 WEEKS
     Route: 042
     Dates: start: 20221208
  10. INFLECTRA [Suspect]
     Active Substance: INFLIXIMAB-DYYB
     Dosage: 12 MG/KG, EVERY 4 WEEKS
     Route: 042
     Dates: start: 20230117
  11. INFLECTRA [Suspect]
     Active Substance: INFLIXIMAB-DYYB
     Dosage: 12 MG/KG, 748MG EVERY 4 WEEKS
     Route: 042
     Dates: start: 20230214
  12. INFLECTRA [Suspect]
     Active Substance: INFLIXIMAB-DYYB
     Dosage: 12 MG/KG, REINDUCTION: WEEK 0, 2, 6 AND THEN EVERY 4 WEEKS
     Route: 042
     Dates: start: 20230927
  13. INFLECTRA [Suspect]
     Active Substance: INFLIXIMAB-DYYB
     Dosage: 12 MG/KG, REINDUCTION: WEEK 0, 2, 6 AND THEN EVERY 4 WEEKS
     Route: 042
     Dates: start: 20231025
  14. MAGNESIUM [Concomitant]
     Active Substance: MAGNESIUM
     Dosage: 1 DF
  15. PREDNISONE [Concomitant]
     Active Substance: PREDNISONE
     Dosage: 30 MG
  16. SHINGRIX [Concomitant]
     Active Substance: RECOMBINANT VARICELLA ZOSTER VIRUS (VZV) GLYCOPROTEIN E
     Indication: Immunisation
     Dosage: DOSE NUMBER UNKNOWN, SINGLE
     Dates: start: 20221005, end: 20221005

REACTIONS (20)
  - Rectal haemorrhage [Unknown]
  - Stoma site discomfort [Unknown]
  - Stoma site infection [Unknown]
  - Stoma site discharge [Unknown]
  - Weight increased [Unknown]
  - Rash pruritic [Not Recovered/Not Resolved]
  - Fistula [Not Recovered/Not Resolved]
  - Skin reaction [Recovered/Resolved]
  - Alopecia [Not Recovered/Not Resolved]
  - Localised infection [Recovered/Resolved]
  - Stoma site dermatitis [Unknown]
  - Proctitis [Unknown]
  - Polyp [Unknown]
  - Erythema [Recovering/Resolving]
  - Wound [Recovering/Resolving]
  - Off label use [Unknown]
  - Off label use [Unknown]
  - Off label use [Unknown]
  - Intentional product use issue [Unknown]
  - Inappropriate schedule of product administration [Unknown]

NARRATIVE: CASE EVENT DATE: 20220101
